FAERS Safety Report 9911648 (Version 1)
Quarter: 2014Q1

REPORT INFORMATION
  Report Type: Spontaneous
  Country: US (occurrence: US)
  Receive Date: 20140219
  Receipt Date: 20140219
  Transmission Date: 20141002
  Serious: Yes (Disabling, Other)
  Sender: FDA-Public Use
  Company Number: US-ELI_LILLY_AND_COMPANY-US201402002738

PATIENT
  Sex: Male

DRUGS (6)
  1. INSULIN HUMAN [Suspect]
     Indication: TYPE 2 DIABETES MELLITUS
     Dosage: UNK
     Route: 065
     Dates: start: 1979, end: 2012
  2. HYDRALAZINE [Concomitant]
     Dosage: 25 MG, BID
  3. LIPITOR [Concomitant]
  4. FUROSEMIDE [Concomitant]
     Dosage: 40 MG, BID
  5. LAMOTRIGINE [Concomitant]
     Dosage: 100 MG, UNK
  6. GEMFIBROZIL [Concomitant]
     Dosage: UNK, BID

REACTIONS (8)
  - Heart rate decreased [Unknown]
  - Intervertebral disc protrusion [Not Recovered/Not Resolved]
  - Vertebral osteophyte [Not Recovered/Not Resolved]
  - Gout [Not Recovered/Not Resolved]
  - Neuropathy peripheral [Not Recovered/Not Resolved]
  - Arthritis [Not Recovered/Not Resolved]
  - Local swelling [Unknown]
  - Drug ineffective [Unknown]
